FAERS Safety Report 12734493 (Version 3)
Quarter: 2016Q4

REPORT INFORMATION
  Report Type: Report from Study
  Country: DE (occurrence: DE)
  Receive Date: 20160912
  Receipt Date: 20161102
  Transmission Date: 20170207
  Serious: Yes (Hospitalization)
  Sender: FDA-Public Use
  Company Number: DE-AMGEN-DEUCT2016120690

PATIENT
  Age: 76 Year
  Sex: Female
  Weight: 84.1 kg

DRUGS (5)
  1. PARACETAMOL [Concomitant]
     Active Substance: ACETAMINOPHEN
     Dosage: 500 MG, UNK
     Route: 048
     Dates: start: 20160518, end: 20160518
  2. VITAMIN D3 [Concomitant]
     Active Substance: CHOLECALCIFEROL
     Dosage: 1000 IU, QD
     Route: 048
  3. ARCOXIA [Concomitant]
     Active Substance: ETORICOXIB
     Dosage: 60 MG, UNK
     Route: 048
     Dates: start: 20160518, end: 20160518
  4. TALIMOGENE LAHERPAREPVEC [Suspect]
     Active Substance: TALIMOGENE LAHERPAREPVEC
     Indication: MALIGNANT MELANOMA
     Dosage: 2.3-4.0 ML, UNK
     Route: 026
     Dates: start: 20160422, end: 20160714
  5. CITALOPRAM [Concomitant]
     Active Substance: CITALOPRAM HYDROBROMIDE
     Dosage: 10 MG, QD
     Route: 048

REACTIONS (1)
  - Peripheral nerve sheath tumour malignant [Recovered/Resolved]

NARRATIVE: CASE EVENT DATE: 20160715
